FAERS Safety Report 8610318-4 (Version None)
Quarter: 2012Q3

REPORT INFORMATION
  Report Type: 
  Country: None (occurrence: None)
  Receive Date: 20120822
  Receipt Date: 20120814
  Transmission Date: 20120928
  Serious: Yes (Hospitalization)
  Sender: FDA-Public Use
  Company Number: PHHY2012CA071314

PATIENT
  Sex: Male

DRUGS (8)
  1. RISPERIDONE [Concomitant]
  2. METOCLOPRAMIDE [Concomitant]
  3. LANSOPRAZOLE [Concomitant]
  4. COVERSYL PLUS [Concomitant]
  5. SENNA [Concomitant]
  6. ATENOLOL [Concomitant]
  7. EVEROLIMUS [Suspect]
     Indication: PANCREATIC NEUROENDOCRINE TUMOUR
     Dosage: 5 MG, QD
     Dates: start: 20120516
  8. CREON [Concomitant]

REACTIONS (9)
  - BLOOD CREATININE INCREASED [None]
  - FALL [None]
  - GENERAL PHYSICAL HEALTH DETERIORATION [None]
  - NEOPLASM PROGRESSION [None]
  - ASTHENIA [None]
  - NEOPLASM MALIGNANT [None]
  - ABDOMINAL DISTENSION [None]
  - BRADYCARDIA [None]
  - OEDEMA PERIPHERAL [None]
